FAERS Safety Report 9171169 (Version 1)
Quarter: 2013Q1

REPORT INFORMATION
  Report Type: Spontaneous
  Country: US (occurrence: None)
  Receive Date: 20130312
  Receipt Date: 20130312
  Transmission Date: 20140127
  Serious: Yes (Life-Threatening, Other)
  Sender: FDA-Public Use
  Company Number: SYM-2013-01459

PATIENT
  Age: 55 Year
  Sex: Female

DRUGS (7)
  1. XENAZINE (TETRABENAZINE) (12.5 MILLIGRAM, TABLETS) (TETRABENAZINE) [Suspect]
     Indication: HUNTINGTON^S DISEASE
     Route: 048
     Dates: start: 20121015, end: 20121105
  2. ABILIFY (ARIPIRRAZOLE) (UNKNOWN) (ARIPIPRAZOLE) [Concomitant]
  3. PAXIL (PAROXETINE HYDROCHLORIDE ) (UNKNOWN) (PAROXETINE HYDROCHLORIDE) [Concomitant]
  4. TRAZODONE (TRAZODONE) (UNKNOWN) (TRAZODONE) [Concomitant]
  5. IMITREX (SUMATRIPTAN) (UNKNOWN) (SUMATRIPTAN) [Concomitant]
  6. LEXAPRO (ESCITALOPRAM OXALATE) (UNKNOWN) (ESCITALOPRAM) [Concomitant]
  7. LUNESTA (ESZOPICLONE) (UNKNOWN) (ESZOPICLONE) [Concomitant]

REACTIONS (2)
  - Sleep disorder [None]
  - Delusion [None]
